FAERS Safety Report 21973019 (Version 2)
Quarter: 2023Q1

REPORT INFORMATION
  Report Type: Spontaneous
  Country: US (occurrence: US)
  Receive Date: 20230209
  Receipt Date: 20230224
  Transmission Date: 20230418
  Serious: No
  Sender: FDA-Public Use
  Company Number: US-PFIZER INC-PV202300025202

PATIENT
  Age: 72 Year
  Sex: Female
  Weight: 69.39 kg

DRUGS (1)
  1. PAXLOVID [Suspect]
     Active Substance: NIRMATRELVIR\RITONAVIR
     Indication: COVID-19 treatment
     Dosage: [PF-07321332 300 MG]/[RITONAVIR 100 MG]; 2X/DAY
     Route: 048
     Dates: start: 20230124, end: 20230126

REACTIONS (5)
  - Dysgeusia [Recovering/Resolving]
  - Oral discomfort [Recovering/Resolving]
  - Laryngitis [Recovering/Resolving]
  - Oesophageal disorder [Recovering/Resolving]
  - Vomiting [Recovering/Resolving]

NARRATIVE: CASE EVENT DATE: 20230124
